FAERS Safety Report 9793361 (Version 2)
Quarter: 2014Q1

REPORT INFORMATION
  Report Type: Spontaneous
  Country: US (occurrence: US)
  Receive Date: 20140102
  Receipt Date: 20140123
  Transmission Date: 20141002
  Serious: Yes (Death)
  Sender: FDA-Public Use
  Company Number: US-PFIZER INC-2013374454

PATIENT
  Age: 80 Year
  Sex: Female

DRUGS (12)
  1. SUTENT [Suspect]
     Indication: BREAST CANCER
     Dosage: 25 MG, CYCLIC (FOR 4 WEEKS, EVERY 6 WEEKS)
     Route: 048
     Dates: start: 2006
  2. SUTENT [Suspect]
     Indication: GASTROINTESTINAL STROMAL TUMOUR
  3. ATROPINE [Concomitant]
     Dosage: UNK
  4. DIOVAN [Concomitant]
     Dosage: 80 MG, 1X/DAY
  5. LIPITOR [Concomitant]
     Dosage: 80 MG, 1X/DAY
  6. MEGACE [Concomitant]
     Dosage: 40 MG, 2X/DAY
  7. NEXIUM [Concomitant]
     Dosage: 40 MG, 1X/DAY
  8. SODIUM BICARBONATE [Concomitant]
     Dosage: 650 MG, 2X/DAY
  9. SYNTHROID [Concomitant]
     Dosage: 75 UG, 1X/DAY
  10. QUESTRAN [Concomitant]
     Dosage: ? PPD
  11. QVAR [Concomitant]
     Dosage: 1 PUFF TWICE DAILY
  12. PRO-AIR [Concomitant]
     Dosage: UNK

REACTIONS (2)
  - Respiratory failure [Fatal]
  - Off label use [Unknown]
